FAERS Safety Report 10094768 (Version 1)
Quarter: 2014Q2

REPORT INFORMATION
  Report Type: Spontaneous
  Country: US (occurrence: US)
  Receive Date: 20140422
  Receipt Date: 20140422
  Transmission Date: 20141212
  Serious: No
  Sender: FDA-Public Use
  Company Number: US-PFIZER INC-2014110352

PATIENT
  Sex: Female
  Weight: 65.76 kg

DRUGS (3)
  1. NEURONTIN [Suspect]
     Indication: BIPOLAR DISORDER
     Dosage: 200 MG, 3X/DAY
     Dates: start: 20140331
  2. ABILIFY [Concomitant]
     Indication: BIPOLAR DISORDER
     Dosage: 30 MG, DAILY
  3. LEVOXYL [Concomitant]
     Indication: HYPOTHYROIDISM
     Dosage: 75 UG, DAILY

REACTIONS (3)
  - Palpitations [Unknown]
  - Pyrexia [Unknown]
  - Ear infection [Unknown]
